FAERS Safety Report 10350747 (Version 2)
Quarter: 2014Q4

REPORT INFORMATION
  Report Type: Spontaneous
  Country: US (occurrence: US)
  Receive Date: 20140730
  Receipt Date: 20141125
  Transmission Date: 20150528
  Serious: No
  Sender: FDA-Public Use
  Company Number: US-BRISTOL-MYERS SQUIBB COMPANY-21121447

PATIENT
  Age: 44 Year
  Sex: Female

DRUGS (7)
  1. METFORMIN [Concomitant]
     Active Substance: METFORMIN HYDROCHLORIDE
  2. FARXIGA [Suspect]
     Active Substance: DAPAGLIFLOZIN PROPANEDIOL
     Indication: DIABETES MELLITUS INADEQUATE CONTROL
     Dosage: FARXIGA 5MG
     Route: 048
     Dates: start: 20140319, end: 201405
  3. INSULIN [Concomitant]
     Active Substance: INSULIN NOS
     Dosage: RAPID-ACTING INSULIN ?SHORT ACTING INSULIN.
  4. BETAMETHASONE [Concomitant]
     Active Substance: BETAMETHASONE
     Dosage: ZESTAM
  5. NEXIUM [Concomitant]
     Active Substance: ESOMEPRAZOLE MAGNESIUM
  6. PAXIL [Concomitant]
     Active Substance: PAROXETINE HYDROCHLORIDE
  7. CRESTOR [Concomitant]
     Active Substance: ROSUVASTATIN CALCIUM

REACTIONS (1)
  - Feeling abnormal [Recovered/Resolved]

NARRATIVE: CASE EVENT DATE: 201405
